FAERS Safety Report 4357125-9 (Version None)
Quarter: 2004Q2

REPORT INFORMATION
  Report Type: 
  Country: None (occurrence: None)
  Receive Date: 20040512
  Receipt Date: 20040503
  Transmission Date: 20050107
  Serious: Yes (Disabling)
  Sender: FDA-Public Use
  Company Number: US-MERCK-0405USA00102

PATIENT
  Age: 70 Year
  Sex: Male

DRUGS (12)
  1. LEXAPRO [Concomitant]
     Route: 065
  2. DURAGESIC [Concomitant]
     Route: 065
  3. FUROSEMIDE [Concomitant]
     Route: 065
  4. INDAPAMIDE [Concomitant]
     Route: 065
  5. AVAPRO [Concomitant]
     Route: 065
  6. PRILOSEC [Concomitant]
     Route: 065
  7. OXYCONTIN [Concomitant]
     Route: 065
  8. PREDNISONE [Concomitant]
     Route: 065
  9. ZOCOR [Suspect]
     Route: 048
     Dates: start: 20020101
  10. SPIRONOLACTONE [Concomitant]
     Route: 065
  11. TESTOSTERONE CYPIONATE [Concomitant]
     Route: 065
  12. COUMADIN [Concomitant]
     Route: 065

REACTIONS (4)
  - BACK DISORDER [None]
  - BUTTOCK PAIN [None]
  - PAIN [None]
  - PAIN IN EXTREMITY [None]
